FAERS Safety Report 23452316 (Version 1)
Quarter: 2024Q1

REPORT INFORMATION
  Report Type: Spontaneous
  Country: US (occurrence: US)
  Receive Date: 20240129
  Receipt Date: 20240129
  Transmission Date: 20240410
  Serious: No
  Sender: FDA-Public Use
  Company Number: US-MYLANLABS-2024M1002427

PATIENT
  Sex: Male

DRUGS (1)
  1. TYRVAYA [Suspect]
     Active Substance: VARENICLINE TARTRATE
     Indication: Dry eye
     Dosage: 1 DOSAGE FORM, BID (1 SPRAY FOR EACH NOSTRIL TWICE A DAY)
     Route: 045

REACTIONS (3)
  - Device breakage [Unknown]
  - Product quality issue [Unknown]
  - Limb injury [Unknown]
